FAERS Safety Report 8254244-1 (Version None)
Quarter: 2012Q2

REPORT INFORMATION
  Report Type: 
  Country: None (occurrence: None)
  Receive Date: 20120402
  Receipt Date: 20120322
  Transmission Date: 20120825
  Serious: No
  Sender: FDA-Public Use
  Company Number: US-AMGEN-USASP2012018590

PATIENT
  Age: 40 Year
  Sex: Male

DRUGS (1)
  1. ENBREL [Suspect]
     Indication: RHEUMATOID ARTHRITIS
     Dosage: 50 MG, QWK
     Dates: start: 20021126, end: 20120317

REACTIONS (6)
  - DYSPHAGIA [None]
  - OROPHARYNGEAL PAIN [None]
  - LYMPH NODE PAIN [None]
  - PHARYNGEAL OEDEMA [None]
  - SPEECH DISORDER [None]
  - LYMPHADENOPATHY [None]
